FAERS Safety Report 21363890 (Version 1)
Quarter: 2022Q3

REPORT INFORMATION
  Report Type: Spontaneous
  Country: PH (occurrence: None)
  Receive Date: 20220922
  Receipt Date: 20220922
  Transmission Date: 20221027
  Serious: Yes (Other)
  Sender: FDA-Public Use
  Company Number: 2022A320831

PATIENT
  Age: 54 Year
  Sex: Female

DRUGS (1)
  1. LYNPARZA [Suspect]
     Active Substance: OLAPARIB
     Indication: Ovarian cancer
     Dosage: 150.0MG UNKNOWN
     Route: 048
     Dates: start: 20220617, end: 20220909

REACTIONS (4)
  - Mass [Unknown]
  - Pain [Unknown]
  - Eructation [Unknown]
  - Abdominal distension [Unknown]
